FAERS Safety Report 13093174 (Version 2)
Quarter: 2017Q1

REPORT INFORMATION
  Report Type: Spontaneous
  Country: US (occurrence: US)
  Receive Date: 20170106
  Receipt Date: 20170119
  Transmission Date: 20170428
  Serious: Yes (Death)
  Sender: FDA-Public Use
  Company Number: US-B.I. PHARMACEUTICALS,INC./RIDGEFIELD-2017-BI-000897

PATIENT
  Sex: Male

DRUGS (4)
  1. SPIRIVA [Suspect]
     Active Substance: TIOTROPIUM BROMIDE MONOHYDRATE
     Indication: CHRONIC OBSTRUCTIVE PULMONARY DISEASE
     Dosage: ONCE DAILY;  FORM STRENGTH: 18 MCG; FORMULATION: CAPSULE? ADMINISTRATION CORRECT? YES ?ACTION(S) TAK
     Route: 048
     Dates: start: 20140101
  2. NEXAVAR [Concomitant]
     Active Substance: SORAFENIB
     Indication: PRODUCT USED FOR UNKNOWN INDICATION
     Route: 065
  3. LEVOXTHYROXINE [Concomitant]
     Indication: HYPOTHYROIDISM
     Dosage: ONCE DAILY;  FORM STRENGTH: 50MCG; FORMULATION: TABLET
     Route: 048
  4. LYRICA [Concomitant]
     Active Substance: PREGABALIN
     Indication: PAIN IN EXTREMITY
     Dosage: ONCE DAILY;  FORM STRENGTH: 300MG; FORMULATION: TABLET
     Route: 065

REACTIONS (1)
  - Hepatic cancer [Fatal]

NARRATIVE: CASE EVENT DATE: 2016
